FAERS Safety Report 6287026-0 (Version None)
Quarter: 2009Q3

REPORT INFORMATION
  Report Type: 
  Country: None (occurrence: None)
  Receive Date: 20090716
  Receipt Date: 20090205
  Transmission Date: 20100115
  Serious: No
  Sender: FDA-Public Use
  Company Number: 2008BI001362

PATIENT
  Age: 50 Year
  Sex: Female

DRUGS (1)
  1. AVONEX [Suspect]
     Indication: MULTIPLE SCLEROSIS
     Dosage: 30 UG;QW;IM
     Route: 030
     Dates: start: 19980101

REACTIONS (4)
  - HEPATITIS C [None]
  - MULTIPLE SCLEROSIS RELAPSE [None]
  - PORPHYRIA NON-ACUTE [None]
  - RASH [None]
